FAERS Safety Report 24937148 (Version 1)
Quarter: 2025Q1

REPORT INFORMATION
  Report Type: Spontaneous
  Country: RU (occurrence: RU)
  Receive Date: 20250206
  Receipt Date: 20250206
  Transmission Date: 20250409
  Serious: Yes (Other)
  Sender: MERCK KGAA
  Company Number: RU-Merck Healthcare KGaA-2025005625

PATIENT
  Age: 61 Year
  Sex: Female

DRUGS (1)
  1. EUTHYROX [Suspect]
     Active Substance: LEVOTHYROXINE SODIUM
     Indication: Autoimmune thyroiditis

REACTIONS (4)
  - Syncope [Unknown]
  - Heart rate decreased [Unknown]
  - Blood thyroid stimulating hormone decreased [Unknown]
  - Thyroxine decreased [Unknown]
